FAERS Safety Report 8346912-8 (Version None)
Quarter: 2012Q2

REPORT INFORMATION
  Report Type: 
  Country: None (occurrence: None)
  Receive Date: 20120509
  Receipt Date: 20120430
  Transmission Date: 20120825
  Serious: Yes (Hospitalization)
  Sender: FDA-Public Use
  Company Number: IN-SANOFI-AVENTIS-2012SA031060

PATIENT
  Age: 48 Year
  Sex: Male

DRUGS (6)
  1. AMLODIPINE [Concomitant]
     Indication: HYPERTENSION
  2. ETHAMBUTOL HYDROCHLORIDE [Concomitant]
     Indication: TUBERCULOSIS
  3. PYRAZINAMIDE [Concomitant]
     Indication: TUBERCULOSIS
  4. LOSARTAN POTASSIUM [Concomitant]
     Indication: HYPERTENSION
  5. RIFAMPICIN [Suspect]
     Indication: TUBERCULOSIS
     Route: 065
  6. ISONIAZID [Concomitant]
     Indication: TUBERCULOSIS

REACTIONS (2)
  - ACUTE LEFT VENTRICULAR FAILURE [None]
  - ACCELERATED HYPERTENSION [None]
